FAERS Safety Report 6082725-8 (Version None)
Quarter: 2009Q1

REPORT INFORMATION
  Report Type: 
  Country: None (occurrence: None)
  Receive Date: 20090218
  Receipt Date: 20090206
  Transmission Date: 20090719
  Serious: Yes (Hospitalization, Other)
  Sender: FDA-Public Use
  Company Number: DK-PFIZER INC-2009152639

PATIENT

DRUGS (2)
  1. CYTOTEC [Suspect]
     Indication: LABOUR INDUCTION
     Route: 015
     Dates: start: 20060916, end: 20060916
  2. PEVARYL [Concomitant]
     Indication: FUNGAL INFECTION
     Dosage: UNK
     Route: 067
     Dates: start: 20060911, end: 20060913

REACTIONS (5)
  - ABNORMAL LABOUR [None]
  - CHILLS [None]
  - OFF LABEL USE [None]
  - POSTPARTUM HAEMORRHAGE [None]
  - VOMITING [None]
